FAERS Safety Report 9401079 (Version 3)
Quarter: 2013Q3

REPORT INFORMATION
  Report Type: Spontaneous
  Country: US (occurrence: US)
  Receive Date: 20130715
  Receipt Date: 20130829
  Transmission Date: 20140515
  Serious: No
  Sender: FDA-Public Use
  Company Number: US-TEVA-418767USA

PATIENT
  Age: 37 Year
  Sex: Female
  Weight: 68.1 kg

DRUGS (3)
  1. QNASL [Suspect]
     Indication: SEASONAL ALLERGY
     Route: 045
  2. VITAMINS NOS [Concomitant]
  3. MELATONIN [Concomitant]

REACTIONS (2)
  - Burning sensation [Unknown]
  - Anosmia [Not Recovered/Not Resolved]
